FAERS Safety Report 9959609 (Version 2)
Quarter: 2014Q2

REPORT INFORMATION
  Report Type: Spontaneous
  Country: CN (occurrence: None)
  Receive Date: 20140227
  Receipt Date: 20140401
  Transmission Date: 20141212
  Serious: Yes (Hospitalization)
  Sender: FDA-Public Use
  Company Number: B0972110A

PATIENT
  Age: 43 Year
  Sex: Female
  Weight: 59.88 kg

DRUGS (2)
  1. PAROXETINE HYDROCHLORIDE TABLETS [Suspect]
     Indication: DEPRESSION
     Route: 048
  2. HYPNOTIC [Concomitant]

REACTIONS (2)
  - Panic attack [None]
  - Dizziness [None]
